FAERS Safety Report 7195114-X (Version None)
Quarter: 2010Q4

REPORT INFORMATION
  Report Type: 
  Country: None (occurrence: None)
  Receive Date: 20101223
  Receipt Date: 20100925
  Transmission Date: 20110411
  Serious: No
  Sender: FDA-Public Use
  Company Number: US-AMGEN-KDL441143

PATIENT

DRUGS (1)
  1. ENBREL [Suspect]
     Indication: RHEUMATOID ARTHRITIS
     Dosage: 50 MG, QWK
     Route: 058
     Dates: start: 20100819, end: 20100924

REACTIONS (6)
  - CHROMATURIA [None]
  - INJECTION SITE ERYTHEMA [None]
  - INJECTION SITE PRURITUS [None]
  - OROPHARYNGEAL PAIN [None]
  - URINE ODOUR ABNORMAL [None]
  - WHITE BLOOD CELLS URINE POSITIVE [None]
